FAERS Safety Report 13341147 (Version 1)
Quarter: 2017Q1

REPORT INFORMATION
  Report Type: Spontaneous
  Country: US (occurrence: US)
  Receive Date: 20170315
  Receipt Date: 20170315
  Transmission Date: 20170428
  Serious: Yes (Other)
  Sender: FDA-Public Use
  Company Number: None

PATIENT
  Age: 58 Year
  Sex: Female
  Weight: 61.7 kg

DRUGS (1)
  1. AUGMENTIN [Suspect]
     Active Substance: AMOXICILLIN\CLAVULANATE POTASSIUM
     Indication: UPPER RESPIRATORY TRACT INFECTION
     Dosage: ?          OTHER FREQUENCY:ONE TIME;?
     Route: 048
     Dates: start: 20170313, end: 20170313

REACTIONS (6)
  - Respiratory rate increased [None]
  - Hypersensitivity [None]
  - Vomiting [None]
  - Pruritus [None]
  - Anxiety [None]
  - Rash erythematous [None]

NARRATIVE: CASE EVENT DATE: 20170313
